FAERS Safety Report 25835651 (Version 2)
Quarter: 2025Q4

REPORT INFORMATION
  Report Type: Report from Study
  Country: CA (occurrence: None)
  Receive Date: 20250923
  Receipt Date: 20251110
  Transmission Date: 20260119
  Serious: Yes (Other)
  Sender: UCB
  Company Number: CA-UCBSA-2025053951

PATIENT
  Age: 25 Year

DRUGS (1)
  1. BIMEKIZUMAB [Suspect]
     Active Substance: BIMEKIZUMAB
     Indication: Psoriatic arthropathy
     Dosage: 160 MILLIGRAM, EV 4 WEEKS

REACTIONS (16)
  - Psoriatic arthropathy [Not Recovered/Not Resolved]
  - Monoplegia [Not Recovered/Not Resolved]
  - Eczema [Not Recovered/Not Resolved]
  - Vision blurred [Not Recovered/Not Resolved]
  - Migraine with aura [Not Recovered/Not Resolved]
  - Vertigo [Not Recovered/Not Resolved]
  - Nausea [Not Recovered/Not Resolved]
  - Aphasia [Not Recovered/Not Resolved]
  - Hypoaesthesia [Not Recovered/Not Resolved]
  - Tremor [Not Recovered/Not Resolved]
  - Hot flush [Not Recovered/Not Resolved]
  - Chills [Not Recovered/Not Resolved]
  - Dysphagia [Not Recovered/Not Resolved]
  - Dyspnoea [Not Recovered/Not Resolved]
  - Tinnitus [Not Recovered/Not Resolved]
  - Inappropriate schedule of product administration [Unknown]
